FAERS Safety Report 4522697-8 (Version None)
Quarter: 2004Q4

REPORT INFORMATION
  Report Type: 
  Country: None (occurrence: None)
  Receive Date: 20041207
  Receipt Date: 20041122
  Transmission Date: 20050328
  Serious: Yes (Hospitalization)
  Sender: FDA-Public Use
  Company Number: DE_041114752

PATIENT
  Age: 27 Year
  Sex: Female
  Weight: 100 kg

DRUGS (1)
  1. YENTREVE (DULOXETINE HYDROCHLORIDE) [Suspect]
     Indication: INCONTINENCE
     Dosage: 40 MG IN THE EVENING
     Dates: start: 20041017

REACTIONS (11)
  - ABNORMAL FAECES [None]
  - APHASIA [None]
  - CHILLS [None]
  - DIZZINESS [None]
  - DYSPHEMIA [None]
  - FEELING COLD [None]
  - FEELING HOT [None]
  - HYPERHIDROSIS [None]
  - INSOMNIA [None]
  - RESTLESSNESS [None]
  - VOMITING [None]
